FAERS Safety Report 24946372 (Version 2)
Quarter: 2025Q1

REPORT INFORMATION
  Report Type: Spontaneous
  Country: US (occurrence: US)
  Receive Date: 20250210
  Receipt Date: 20250317
  Transmission Date: 20250409
  Serious: Yes (Hospitalization, Other)
  Sender: NOVO NORDISK
  Company Number: US-NOVOPROD-1362884

PATIENT
  Age: 63 Year
  Sex: Male
  Weight: 140 kg

DRUGS (21)
  1. OZEMPIC [Suspect]
     Active Substance: SEMAGLUTIDE
     Route: 058
  2. OZEMPIC [Suspect]
     Active Substance: SEMAGLUTIDE
     Indication: Type 2 diabetes mellitus
     Dosage: 1 MG, QW
     Route: 058
  3. OZEMPIC [Suspect]
     Active Substance: SEMAGLUTIDE
     Dosage: 2 MG (DOSE INCREASED)
     Route: 058
  4. JARDIANCE [Concomitant]
     Active Substance: EMPAGLIFLOZIN
     Indication: Product used for unknown indication
     Dates: end: 202406
  5. ROSUVASTATIN [Concomitant]
     Active Substance: ROSUVASTATIN
     Indication: Hyperlipidaemia
     Dates: end: 202406
  6. OZEMPIC [Suspect]
     Active Substance: SEMAGLUTIDE
     Indication: Type 2 diabetes mellitus
     Dosage: 2 MG, QW
  7. LEVEMIR [Suspect]
     Active Substance: INSULIN DETEMIR
     Dosage: 25 UNITS, BID
     Dates: start: 20240108
  8. LEVEMIR [Suspect]
     Active Substance: INSULIN DETEMIR
     Indication: Type 2 diabetes mellitus
  9. INSULIN HUMAN [Suspect]
     Active Substance: INSULIN HUMAN
     Dates: start: 20240108
  10. INSULIN HUMAN [Suspect]
     Active Substance: INSULIN HUMAN
     Indication: Type 2 diabetes mellitus
  11. LISINOPRIL [Concomitant]
     Active Substance: LISINOPRIL
     Indication: Product used for unknown indication
     Dates: end: 202406
  12. FUROSEMIDE [Concomitant]
     Active Substance: FUROSEMIDE
     Indication: Myocardial infarction
  13. FUROSEMIDE [Concomitant]
     Active Substance: FUROSEMIDE
     Indication: Hypertension
  14. EZETIMIBE [Concomitant]
     Active Substance: EZETIMIBE
     Indication: Hyperlipidaemia
     Dates: start: 2024
  15. CARVEDILOL [Concomitant]
     Active Substance: CARVEDILOL
     Indication: Hypertension
  16. CARVEDILOL [Concomitant]
     Active Substance: CARVEDILOL
     Indication: Myocardial infarction
  17. LEVOTHYROXINE [Concomitant]
     Active Substance: LEVOTHYROXINE
     Indication: Hypothyroidism
  18. ASPIRIN [Concomitant]
     Active Substance: ASPIRIN
     Indication: Myocardial infarction
  19. PREGABALIN [Concomitant]
     Active Substance: PREGABALIN
     Indication: Pain management
  20. CALCIUM ACETATE [Concomitant]
     Active Substance: CALCIUM ACETATE
     Indication: Product used for unknown indication
     Dosage: 667 MG, TID
     Route: 048
  21. CALCIUM ACETATE [Concomitant]
     Active Substance: CALCIUM ACETATE
     Indication: Product used for unknown indication
     Dosage: 667 MG, TID
     Route: 048

REACTIONS (18)
  - Renal failure [Not Recovered/Not Resolved]
  - End stage renal disease [Not Recovered/Not Resolved]
  - Rhabdomyolysis [Unknown]
  - Myocardial infarction [Unknown]
  - Ischaemic cardiomyopathy [Unknown]
  - Diabetes mellitus inadequate control [Unknown]
  - Arthralgia [Not Recovered/Not Resolved]
  - Biopsy kidney [Unknown]
  - Hepatic steatosis [Unknown]
  - Renal cyst [Unknown]
  - Torticollis [Unknown]
  - Hypothyroidism [Unknown]
  - Hypertension [Unknown]
  - Oedema peripheral [Unknown]
  - Hyperlipidaemia [Unknown]
  - Weight increased [Not Recovered/Not Resolved]
  - Myalgia [Unknown]
  - Abdominal discomfort [Recovered/Resolved]

NARRATIVE: CASE EVENT DATE: 20240606
